FAERS Safety Report 11403635 (Version 1)
Quarter: 2015Q3

REPORT INFORMATION
  Report Type: Spontaneous
  Country: US (occurrence: None)
  Receive Date: 20150820
  Receipt Date: 20150820
  Transmission Date: 20151125
  Serious: Yes (Disabling, Other)
  Sender: FDA-Public Use
  Company Number: None

PATIENT
  Age: 24 Year
  Sex: Female
  Weight: 52.62 kg

DRUGS (7)
  1. BEYAZ [Concomitant]
     Active Substance: DROSPIRENONE\ETHINYL ESTRADIOL\LEVOMEFOLATE CALCIUM
  2. ZYRTEC/ALLEGRA/CLARITIN [Concomitant]
  3. VITAMIN C [Concomitant]
     Active Substance: ASCORBIC ACID
  4. SERTRALINE [Concomitant]
     Active Substance: SERTRALINE HYDROCHLORIDE
  5. MICONAZOLE 1200MG WALGREENS [Suspect]
     Active Substance: MICONAZOLE
     Indication: FUNGAL INFECTION
     Route: 067
     Dates: start: 20150818, end: 20150818
  6. DIFLUCAN [Concomitant]
     Active Substance: FLUCONAZOLE
  7. WOMEN^S MULTIVITAMIN [Concomitant]

REACTIONS (3)
  - Chemical injury [None]
  - Product quality issue [None]
  - Vaginal disorder [None]

NARRATIVE: CASE EVENT DATE: 20150818
